FAERS Safety Report 5412264-6 (Version None)
Quarter: 2007Q3

REPORT INFORMATION
  Report Type: 
  Country: None (occurrence: None)
  Receive Date: 20070810
  Receipt Date: 20070810
  Transmission Date: 20080115
  Serious: Yes (Life-Threatening, Hospitalization)
  Sender: FDA-Public Use
  Company Number: None

PATIENT
  Age: 85 Year
  Sex: Female
  Weight: 47.6277 kg

DRUGS (2)
  1. PRILOSEC [Suspect]
     Indication: GASTROOESOPHAGEAL REFLUX DISEASE
     Dates: start: 20030101, end: 20060128
  2. DETROL [Suspect]
     Indication: POLLAKIURIA
     Dates: start: 20050529, end: 20050829

REACTIONS (7)
  - CONFUSIONAL STATE [None]
  - DIZZINESS [None]
  - EATING DISORDER [None]
  - FATIGUE [None]
  - INCREASED UPPER AIRWAY SECRETION [None]
  - MOBILITY DECREASED [None]
  - SPEECH DISORDER [None]
